FAERS Safety Report 20453660 (Version 1)
Quarter: 2022Q1

REPORT INFORMATION
  Report Type: Other
  Country: CA (occurrence: CA)
  Receive Date: 20220210
  Receipt Date: 20220210
  Transmission Date: 20220424
  Serious: Yes (Other)
  Sender: FDA-Public Use
  Company Number: CA-APOTEX-2022AP003144

PATIENT
  Age: 42 Year
  Sex: Female

DRUGS (1)
  1. LEFLUNOMIDE [Suspect]
     Active Substance: LEFLUNOMIDE
     Indication: Product used for unknown indication
     Dosage: 20 MILLIGRAM
     Route: 048

REACTIONS (7)
  - Cough [Unknown]
  - Drug intolerance [Unknown]
  - Dry skin [Unknown]
  - Haemorrhage [Unknown]
  - Respiratory symptom [Unknown]
  - Rhinorrhoea [Unknown]
  - Skin plaque [Unknown]
